FAERS Safety Report 24447873 (Version 2)
Quarter: 2025Q1

REPORT INFORMATION
  Report Type: Spontaneous
  Country: US (occurrence: US)
  Receive Date: 20241016
  Receipt Date: 20250127
  Transmission Date: 20250408
  Serious: No
  Sender: SANOFI AVENTIS
  Company Number: US-SA-2024SA294488

PATIENT
  Age: 9 Year
  Sex: Male
  Weight: 30.3 kg

DRUGS (2)
  1. DUPIXENT [Suspect]
     Active Substance: DUPILUMAB
     Indication: Dermatitis atopic
     Route: 058
  2. DUPIXENT [Suspect]
     Active Substance: DUPILUMAB
     Dosage: 300 MG, Q4W
     Route: 058
     Dates: end: 202412

REACTIONS (5)
  - Skin fissures [Unknown]
  - Dry skin [Unknown]
  - Skin plaque [Unknown]
  - Pruritus [Unknown]
  - Off label use [Unknown]
